FAERS Safety Report 16863030 (Version 4)
Quarter: 2019Q4

REPORT INFORMATION
  Report Type: Report from Study
  Country: NL (occurrence: NL)
  Receive Date: 20190927
  Receipt Date: 20191206
  Transmission Date: 20200122
  Serious: Yes (Death, Other)
  Sender: FDA-Public Use
  Company Number: NL-AMGEN-NLDSL2019070867

PATIENT
  Age: 88 Year
  Sex: Female

DRUGS (7)
  1. TAMOXIFEN [TAMOXIFEN CITRATE] [Concomitant]
     Active Substance: TAMOXIFEN CITRATE
     Dosage: 20 MILLIGRAM, QD (1XD 1T)
  2. OMEPRAZOL [OMEPRAZOLE] [Concomitant]
     Active Substance: OMEPRAZOLE
     Dosage: 20 MILLIGRAM, QD (1XD 1C)
  3. XGEVA [Suspect]
     Active Substance: DENOSUMAB
     Indication: PROPHYLAXIS
     Dosage: 120 MILLIGRAM (1.7ML), Q4WK
     Route: 065
     Dates: start: 20190501
  4. XGEVA [Suspect]
     Active Substance: DENOSUMAB
     Dosage: UNK
     Route: 065
  5. LIDOCAINE. [Concomitant]
     Active Substance: LIDOCAINE
     Dosage: 100 MILLIGRAM PER MILLILITRE
  6. FUROSEMIDE. [Concomitant]
     Active Substance: FUROSEMIDE
     Dosage: 40 MILLIGRAM, QD (1XD 1T)
  7. EXEMESTAAN [Concomitant]
     Active Substance: EXEMESTANE
     Dosage: 25 MILLIGRAM, QD

REACTIONS (5)
  - Death [Fatal]
  - Hypercalcaemia [Unknown]
  - Jaw operation [Not Recovered/Not Resolved]
  - Tooth extraction [Unknown]
  - Breast mass [Unknown]

NARRATIVE: CASE EVENT DATE: 2019
